FAERS Safety Report 5766661-X (Version None)
Quarter: 2008Q2

REPORT INFORMATION
  Report Type: 
  Country: None (occurrence: None)
  Receive Date: 20080610
  Receipt Date: 20080610
  Transmission Date: 20081010
  Serious: Yes (Other)
  Sender: FDA-Public Use
  Company Number: None

PATIENT
  Age: 36 Year
  Sex: Female
  Weight: 73.0291 kg

DRUGS (1)
  1. ULTRAM [Suspect]
     Indication: MYALGIA
     Dosage: 50 MG ONCE EVERY 6 HOURS PO
     Route: 048
     Dates: start: 20080607, end: 20080607

REACTIONS (23)
  - ASTHENIA [None]
  - CARDIAC DISORDER [None]
  - DISTURBANCE IN ATTENTION [None]
  - DIZZINESS [None]
  - DYSPNOEA [None]
  - EAR DISCOMFORT [None]
  - FEELING ABNORMAL [None]
  - HEADACHE [None]
  - HYPERHIDROSIS [None]
  - MENTAL IMPAIRMENT [None]
  - MUSCLE RIGIDITY [None]
  - MUSCULOSKELETAL STIFFNESS [None]
  - NAUSEA [None]
  - NERVOUS SYSTEM DISORDER [None]
  - OEDEMA PERIPHERAL [None]
  - PRESYNCOPE [None]
  - SENSORY DISTURBANCE [None]
  - SOMNOLENCE [None]
  - SWELLING FACE [None]
  - THINKING ABNORMAL [None]
  - TREMOR [None]
  - VERTIGO [None]
  - VISION BLURRED [None]
